FAERS Safety Report 16914390 (Version 6)
Quarter: 2020Q4

REPORT INFORMATION
  Report Type: Spontaneous
  Country: US (occurrence: US)
  Receive Date: 20191014
  Receipt Date: 20201106
  Transmission Date: 20210113
  Serious: Yes (Hospitalization, Other)
  Sender: FDA-Public Use
  Company Number: US-SA-2019SA278382

PATIENT

DRUGS (4)
  1. DICLOFENAC [Concomitant]
     Active Substance: DICLOFENAC
  2. DUPIXENT [Suspect]
     Active Substance: DUPILUMAB
     Indication: RHEUMATOID ARTHRITIS
  3. CIMZIA [Suspect]
     Active Substance: CERTOLIZUMAB PEGOL
  4. DUPIXENT [Suspect]
     Active Substance: DUPILUMAB
     Indication: DERMATITIS ATOPIC
     Dosage: 300 MG, QOW
     Route: 058
     Dates: start: 20190829

REACTIONS (12)
  - Adverse drug reaction [Not Recovered/Not Resolved]
  - Urinary tract infection [Not Recovered/Not Resolved]
  - Headache [Not Recovered/Not Resolved]
  - Surgery [Not Recovered/Not Resolved]
  - Nasopharyngitis [Not Recovered/Not Resolved]
  - Rheumatoid arthritis [Not Recovered/Not Resolved]
  - Fatigue [Not Recovered/Not Resolved]
  - Asthenia [Not Recovered/Not Resolved]
  - Nausea [Not Recovered/Not Resolved]
  - Chest pain [Not Recovered/Not Resolved]
  - Product use in unapproved indication [Unknown]
  - Dermatitis atopic [Not Recovered/Not Resolved]

NARRATIVE: CASE EVENT DATE: 20190927
